FAERS Safety Report 7908952-X (Version None)
Quarter: 2011Q4

REPORT INFORMATION
  Report Type: 
  Country: None (occurrence: None)
  Receive Date: 20111108
  Receipt Date: 20111026
  Transmission Date: 20120403
  Serious: Yes (Hospitalization)
  Sender: FDA-Public Use
  Company Number: 2011SP050457

PATIENT
  Age: 37 Year
  Sex: Male
  Weight: 61.8 kg

DRUGS (5)
  1. LEVETIRACETAM [Concomitant]
  2. DEXAMETHASONE [Concomitant]
  3. FAMOTIDINE [Concomitant]
  4. TEMODAL [Suspect]
     Indication: GLIOBLASTOMA
     Dosage: 100 MG;PO
     Route: 048
     Dates: start: 20100305, end: 20100420
  5. MANNITOL 20% [Concomitant]

REACTIONS (3)
  - DYSPHAGIA [None]
  - BLOOD CHLORIDE DECREASED [None]
  - SOMNOLENCE [None]
